FAERS Safety Report 8234061-9 (Version None)
Quarter: 2012Q1

REPORT INFORMATION
  Report Type: 
  Country: None (occurrence: None)
  Receive Date: 20120326
  Receipt Date: 20120326
  Transmission Date: 20120608
  Serious: Yes (Life-Threatening, Hospitalization, Disabling)
  Sender: FDA-Public Use
  Company Number: None

PATIENT
  Age: 54 Year
  Sex: Male
  Weight: 90.6 kg

DRUGS (3)
  1. ABELCET [Suspect]
  2. ABELCET [Suspect]
     Indication: PNEUMONIA FUNGAL
     Dosage: 450MG
     Route: 041
     Dates: start: 20120321, end: 20120322
  3. ABELCET [Suspect]
     Indication: FEBRILE NEUTROPENIA
     Dosage: 450MG
     Route: 041
     Dates: start: 20120321, end: 20120322

REACTIONS (2)
  - RENAL FAILURE [None]
  - RESPIRATORY FAILURE [None]
